FAERS Safety Report 5133566-7 (Version None)
Quarter: 2006Q4

REPORT INFORMATION
  Report Type: 
  Country: None (occurrence: None)
  Receive Date: 20061018
  Receipt Date: 20061005
  Transmission Date: 20070319
  Serious: Yes (Other)
  Sender: FDA-Public Use
  Company Number: 2006123403

PATIENT
  Age: 42 Year
  Sex: Female

DRUGS (2)
  1. NEURONTIN [Suspect]
  2. ALL OTHER THERAPEUTIC PRODUCTS [Concomitant]

REACTIONS (5)
  - BLINDNESS UNILATERAL [None]
  - FINGER DEFORMITY [None]
  - FOOT DEFORMITY [None]
  - PAIN IN EXTREMITY [None]
  - VISUAL ACUITY REDUCED [None]
